FAERS Safety Report 11073311 (Version 1)
Quarter: 2015Q2

REPORT INFORMATION
  Report Type: Spontaneous
  Country: US (occurrence: US)
  Receive Date: 20150428
  Receipt Date: 20150428
  Transmission Date: 20150821
  Serious: No
  Sender: FDA-Public Use
  Company Number: US-B.I. PHARMACEUTICALS,INC./RIDGEFIELD-2015-BI-20571BP

PATIENT
  Age: 78 Year
  Sex: Female
  Weight: 77 kg

DRUGS (2)
  1. PROAIR HFA [Concomitant]
     Active Substance: ALBUTEROL SULFATE
     Indication: ASTHMA
     Route: 055
  2. COMBIVENT [Suspect]
     Active Substance: ALBUTEROL SULFATE\IPRATROPIUM BROMIDE
     Indication: ASTHMA
     Dosage: STRENGTH: 20MCG/100 MCG; DAILY DOSE: 80MCG/400MCG
     Route: 055
     Dates: start: 20150415

REACTIONS (2)
  - Intentional product misuse [Unknown]
  - Off label use [Unknown]

NARRATIVE: CASE EVENT DATE: 20150415
